FAERS Safety Report 6183351-2 (Version None)
Quarter: 2009Q2

REPORT INFORMATION
  Report Type: 
  Country: None (occurrence: None)
  Receive Date: 20090507
  Receipt Date: 20090427
  Transmission Date: 20091009
  Serious: Yes (Hospitalization)
  Sender: FDA-Public Use
  Company Number: KR-TYCO HEALTHCARE/MALLINCKRODT-T200900950

PATIENT
  Age: 30 Year
  Sex: Female

DRUGS (3)
  1. SODIUM IODIDE I 131 [Suspect]
     Indication: BASEDOW'S DISEASE
     Dosage: 296 MBQ, SINGLE
     Route: 048
  2. SODIUM IODIDE I 131 [Suspect]
     Dosage: 555 MBQ, SINGLE
     Route: 048
  3. ANTITHYROID PREPARATIONS [Concomitant]
     Indication: BASEDOW'S DISEASE

REACTIONS (1)
  - HYPERTHYROIDISM [None]
